FAERS Safety Report 7078261-2 (Version None)
Quarter: 2010Q4

REPORT INFORMATION
  Report Type: 
  Country: None (occurrence: None)
  Receive Date: 20101101
  Receipt Date: 20101101
  Transmission Date: 20110411
  Serious: Yes (Life-Threatening, Hospitalization)
  Sender: FDA-Public Use
  Company Number: None

PATIENT
  Age: 65 Year
  Sex: Male
  Weight: 82 kg

DRUGS (2)
  1. CARVEDILOL [Suspect]
     Dosage: 12.5 MG BID PO
     Route: 048
     Dates: start: 20100129
  2. DILTIAZEM [Suspect]
     Indication: HYPERTENSION
     Dosage: 60 MG BID PO
     Route: 048
     Dates: start: 20100201

REACTIONS (12)
  - ASPIRATION [None]
  - BRAIN INJURY [None]
  - CARDIO-RESPIRATORY ARREST [None]
  - ELECTROENCEPHALOGRAM ABNORMAL [None]
  - HYPOGLYCAEMIA [None]
  - HYPOXIA [None]
  - INTERNATIONAL NORMALISED RATIO DECREASED [None]
  - MULTIPLE DRUG OVERDOSE ACCIDENTAL [None]
  - MYDRIASIS [None]
  - POSTURING [None]
  - PULSE ABSENT [None]
  - UNRESPONSIVE TO STIMULI [None]
